FAERS Safety Report 12522429 (Version 1)
Quarter: 2016Q3

REPORT INFORMATION
  Report Type: Spontaneous
  Country: PT (occurrence: PT)
  Receive Date: 20160701
  Receipt Date: 20160701
  Transmission Date: 20161109
  Serious: Yes (Hospitalization)
  Sender: FDA-Public Use
  Company Number: PT-MYLANLABS-2016M1027554

PATIENT

DRUGS (1)
  1. ESMOLOL [Suspect]
     Active Substance: ESMOLOL HYDROCHLORIDE
     Indication: SINUS TACHYCARDIA
     Route: 042

REACTIONS (2)
  - Cardiac failure acute [Recovered/Resolved]
  - Stress cardiomyopathy [Recovered/Resolved]
